FAERS Safety Report 12268490 (Version 2)
Quarter: 2016Q2

REPORT INFORMATION
  Report Type: Spontaneous
  Country: US (occurrence: US)
  Receive Date: 20160414
  Receipt Date: 20160601
  Transmission Date: 20160815
  Serious: No
  Sender: FDA-Public Use
  Company Number: US-MDT-ADR-2016-00681

PATIENT
  Age: 21 Year
  Sex: Male

DRUGS (1)
  1. LIORESAL [Suspect]
     Active Substance: BACLOFEN
     Dosage: 609.6 MCG/DAY
     Route: 037

REACTIONS (3)
  - Self injurious behaviour [Unknown]
  - Aggression [Unknown]
  - Muscle spasticity [Recovering/Resolving]

NARRATIVE: CASE EVENT DATE: 2013
